FAERS Safety Report 21970892 (Version 1)
Quarter: 2023Q1

REPORT INFORMATION
  Report Type: Spontaneous
  Country: US (occurrence: US)
  Receive Date: 20230209
  Receipt Date: 20230209
  Transmission Date: 20230418
  Serious: Yes (Hospitalization, Other)
  Sender: FDA-Public Use
  Company Number: US-AUROBINDO-AUR-APL-2023-005558

PATIENT
  Age: 42 Year
  Sex: Female

DRUGS (8)
  1. CYCLOPHOSPHAMIDE [Suspect]
     Active Substance: CYCLOPHOSPHAMIDE
     Indication: Hepatosplenic T-cell lymphoma
     Dosage: UNK
     Route: 065
  2. PRALATREXATE [Suspect]
     Active Substance: PRALATREXATE
     Indication: Hepatosplenic T-cell lymphoma
     Dosage: 10?20?30 MG/M2
     Route: 065
  3. PRALATREXATE [Suspect]
     Active Substance: PRALATREXATE
     Dosage: 25 MILLIGRAM/SQ. METER
     Route: 065
  4. PREDNISONE [Suspect]
     Active Substance: PREDNISONE
     Indication: Hepatosplenic T-cell lymphoma
     Dosage: UNK
     Route: 065
  5. DOXORUBICIN [Suspect]
     Active Substance: DOXORUBICIN
     Indication: Hepatosplenic T-cell lymphoma
     Dosage: UNK
     Route: 065
  6. ETOPOSIDE [Suspect]
     Active Substance: ETOPOSIDE
     Indication: Hepatosplenic T-cell lymphoma
     Dosage: UNK
     Route: 065
  7. ROMIDEPSIN [Suspect]
     Active Substance: ROMIDEPSIN
     Indication: Hepatosplenic T-cell lymphoma
     Dosage: 12 MILLIGRAM/SQ. METER
     Route: 065
  8. VINCRISTINE [Suspect]
     Active Substance: VINCRISTINE
     Indication: Hepatosplenic T-cell lymphoma
     Dosage: UNK
     Route: 065

REACTIONS (4)
  - Febrile neutropenia [Unknown]
  - Pancytopenia [Unknown]
  - Epistaxis [Unknown]
  - Drug ineffective [Unknown]
